FAERS Safety Report 22359218 (Version 1)
Quarter: 2023Q2

REPORT INFORMATION
  Report Type: Spontaneous
  Country: US (occurrence: US)
  Receive Date: 20230524
  Receipt Date: 20230524
  Transmission Date: 20230721
  Serious: No
  Sender: FDA-Public Use
  Company Number: US-BIOGEN-2022BI01116653

PATIENT
  Sex: Female

DRUGS (17)
  1. AVONEX [Suspect]
     Active Substance: INTERFERON BETA-1A
     Indication: Multiple sclerosis
     Dosage: INJECT 30MCG INTRAMUSCULARLY EVERY OTHER WEEK
     Route: 050
     Dates: start: 20040416
  2. AVONEX [Suspect]
     Active Substance: INTERFERON BETA-1A
     Dosage: LAST SIX YEARS
     Route: 050
  3. AVONEX [Suspect]
     Active Substance: INTERFERON BETA-1A
  4. AVONEX [Suspect]
     Active Substance: INTERFERON BETA-1A
  5. TIZANIDINE HYDROCHLORIDE [Concomitant]
     Active Substance: TIZANIDINE HYDROCHLORIDE
     Route: 050
  6. FAMOTIDINE [Concomitant]
     Active Substance: FAMOTIDINE
     Route: 050
  7. THYROID [Concomitant]
     Active Substance: LEVOTHYROXINE\LIOTHYRONINE
     Route: 050
  8. POTASSIUM [Concomitant]
     Active Substance: POTASSIUM
     Route: 050
  9. PANTOPRAZOLE SODIUM [Concomitant]
     Active Substance: PANTOPRAZOLE SODIUM
     Route: 050
  10. LIOTHYRONINE SODIUM [Concomitant]
     Active Substance: LIOTHYRONINE SODIUM
     Route: 050
  11. METOCLOPRAMIDE HYDROCHLORIDE [Concomitant]
     Active Substance: METOCLOPRAMIDE HYDROCHLORIDE
     Route: 050
  12. BUSPIRONE HYDROCHLORIDE [Concomitant]
     Active Substance: BUSPIRONE HYDROCHLORIDE
     Route: 050
  13. TRAZODONE HYDROCHLORIDE [Concomitant]
     Active Substance: TRAZODONE HYDROCHLORIDE
     Route: 050
  14. LOVASTATIN [Concomitant]
     Active Substance: LOVASTATIN
     Route: 050
  15. METOPROLOL TARTRATE [Concomitant]
     Active Substance: METOPROLOL TARTRATE
     Route: 050
  16. BUTALBITAL [Concomitant]
     Active Substance: BUTALBITAL
     Route: 050
  17. TRIAMTERENE [Concomitant]
     Active Substance: TRIAMTERENE
     Route: 050

REACTIONS (11)
  - Prescribed underdose [Not Recovered/Not Resolved]
  - Fluid retention [Unknown]
  - Stress [Unknown]
  - Oedema [Unknown]
  - Multiple sclerosis [Recovered/Resolved with Sequelae]
  - Illness [Recovered/Resolved]
  - Paraesthesia [Unknown]
  - Nausea [Unknown]
  - Fatigue [Unknown]
  - Sinusitis [Recovered/Resolved]
  - Influenza like illness [Recovered/Resolved]

NARRATIVE: CASE EVENT DATE: 20150101
